FAERS Safety Report 6164628-3 (Version None)
Quarter: 2009Q2

REPORT INFORMATION
  Report Type: 
  Country: None (occurrence: None)
  Receive Date: 20090421
  Receipt Date: 20090409
  Transmission Date: 20091009
  Serious: Yes (Life-Threatening, Hospitalization)
  Sender: FDA-Public Use
  Company Number: PAR_02931_2009

PATIENT
  Age: 29 Year
  Sex: Male

DRUGS (3)
  1. IBUPROFEN [Suspect]
     Indication: PAIN
     Dosage: (2 TO 3 DF, ^600^ ORAL)
     Route: 048
     Dates: start: 20080912, end: 20080920
  2. KOGENATE  /01229601/ [Concomitant]
  3. PEGINTRON  /01543001/ [Concomitant]

REACTIONS (13)
  - ACTIVATED PARTIAL THROMBOPLASTIN TIME PROLONGED [None]
  - COLONIC POLYP [None]
  - DUODENAL POLYP [None]
  - FALL [None]
  - GASTRIC POLYPS [None]
  - HAEMOGLOBIN DECREASED [None]
  - INFECTION [None]
  - INTESTINAL POLYP [None]
  - LOSS OF CONSCIOUSNESS [None]
  - PLATELET COUNT ABNORMAL [None]
  - PSEUDOPOLYP [None]
  - SHOCK HAEMORRHAGIC [None]
  - SMALL INTESTINAL HAEMORRHAGE [None]
